FAERS Safety Report 7295902-5 (Version None)
Quarter: 2011Q1

REPORT INFORMATION
  Report Type: 
  Country: None (occurrence: None)
  Receive Date: 20110204
  Receipt Date: 20110126
  Transmission Date: 20110831
  Serious: Yes (Disabling)
  Sender: FDA-Public Use
  Company Number: OSCN-NO-0909S-0422

PATIENT
  Age: 63 Year
  Sex: Male
  Weight: 79 kg

DRUGS (21)
  1. GADOVIST [Suspect]
     Indication: PRODUCT USED FOR UNKNOWN INDICATION
     Dosage: 15 ML, SINGLE DOSE, IV
     Route: 042
     Dates: start: 20080221, end: 20080221
  2. SIMVASTATIN [Concomitant]
  3. GLYCERYL TRINITRATE [Concomitant]
  4. ERYTHROPOIETIN (NEORECORMON) [Concomitant]
  5. CETIRIZINE (ALNOK) [Concomitant]
  6. MIRTAZAPINE [Concomitant]
  7. SACCHARATED IRON OXIDE (VENOFER) [Concomitant]
  8. PLAVIX [Concomitant]
  9. FUROSEMIDE [Concomitant]
  10. PARACETAMOL (PINEX) [Concomitant]
  11. CITALOPRAM (AKARIN) [Concomitant]
  12. INSULIN HUMAN (ACTRAPID PEN) [Concomitant]
  13. OMNISCAN [Suspect]
     Indication: PRODUCT USED FOR UNKNOWN INDICATION
     Dosage: 10 ML, SINGLE DOSE, IV
     Route: 042
     Dates: start: 20010607, end: 20010607
  14. CALCIUM ACETATE (PHOS-EX) [Concomitant]
  15. ZOPICLONE (IMOCLONE) [Concomitant]
  16. ACETYLSALICYLIC ACID (MAGNYL) [Concomitant]
  17. NITROGLYCERIN [Concomitant]
  18. INSULIN INSULATARD NPH NORDISK [Concomitant]
  19. PANTOPRAZOLE SODIUM [Concomitant]
  20. ISOSORBIDE MONONITRATE (ISODUR) [Concomitant]
  21. NULYTEY (MOVICOL) [Concomitant]

REACTIONS (18)
  - PERITONITIS [None]
  - SEPTIC SHOCK [None]
  - NEPHROGENIC SYSTEMIC FIBROSIS [None]
  - CEREBROVASCULAR ACCIDENT [None]
  - ABDOMINAL PAIN UPPER [None]
  - ABSCESS [None]
  - TOE AMPUTATION [None]
  - BLOOD PRESSURE INCREASED [None]
  - FOOT FRACTURE [None]
  - LEG AMPUTATION [None]
  - BLOOD PHOSPHORUS INCREASED [None]
  - PERITONEAL DIALYSIS [None]
  - DRUG INTERACTION [None]
  - PULMONARY OEDEMA [None]
  - CLOSTRIDIUM TEST POSITIVE [None]
  - TENDON RUPTURE [None]
  - RENAL FAILURE [None]
  - HAEMODIALYSIS [None]
